FAERS Safety Report 11085760 (Version 2)
Quarter: 2015Q2

REPORT INFORMATION
  Report Type: Spontaneous
  Country: US (occurrence: US)
  Receive Date: 20150503
  Receipt Date: 20150525
  Transmission Date: 20150821
  Serious: Yes (Other)
  Sender: FDA-Public Use
  Company Number: US-JNJFOC-20121207621

PATIENT
  Sex: Female
  Weight: 58.97 kg

DRUGS (2)
  1. NORGESTIMATE/ETHINYL ESTRADIOL [Suspect]
     Active Substance: ETHINYL ESTRADIOL\NORGESTIMATE
     Indication: HAEMORRHAGE
     Dosage: SINCE 3 YEARS
     Route: 048
  2. NORGESTIMATE/ETHINYL ESTRADIOL [Suspect]
     Active Substance: ETHINYL ESTRADIOL\NORGESTIMATE
     Indication: CYST
     Dosage: SINCE 3 YEARS
     Route: 048

REACTIONS (5)
  - Mood swings [Recovered/Resolved]
  - Depression [Recovered/Resolved]
  - Product use issue [Unknown]
  - Haemorrhage [Recovered/Resolved]
  - Cyst [Recovered/Resolved]
